FAERS Safety Report 7908844-6 (Version None)
Quarter: 2011Q4

REPORT INFORMATION
  Report Type: 
  Country: None (occurrence: None)
  Receive Date: 20111111
  Receipt Date: 20111104
  Transmission Date: 20120403
  Serious: Yes (Hospitalization, Other)
  Sender: FDA-Public Use
  Company Number: US-UCBSA-045077

PATIENT
  Age: 56 Year
  Sex: Male
  Weight: 56.3 kg

DRUGS (10)
  1. DEMEROL [Concomitant]
     Indication: PAIN
     Dosage: DAILY DOSE: 100 OR 200 MG, FREQUENCY: 1-2 TIMES A DAY
     Route: 048
  2. BENADRYL [Concomitant]
     Indication: SLEEP DISORDER
     Route: 048
  3. CIMZIA [Suspect]
     Indication: CROHN'S DISEASE
     Route: 058
     Dates: start: 20090101
  4. LEXAPRO [Concomitant]
     Indication: DEPRESSION
     Route: 048
  5. ENTOCORT EC [Concomitant]
     Indication: DIARRHOEA
     Dosage: FREQUENCY: ONE TAB ONE TO TWO TIMES A DAY, DAILY DOSE: 6 MG
     Route: 048
  6. LITHIUM [Concomitant]
     Indication: BIPOLAR DISORDER
     Dosage: TWO PILLS EVERY DAY
     Route: 048
  7. NEXIUM [Concomitant]
     Indication: GASTROOESOPHAGEAL REFLUX DISEASE
     Route: 048
  8. ENABLEX [Concomitant]
     Indication: URINARY INCONTINENCE
     Route: 048
  9. WELLBUTRIN [Concomitant]
     Indication: DEPRESSION
     Route: 048
  10. FLOMAX [Concomitant]
     Indication: POLLAKIURIA
     Dosage: ONE TABLET 30 MINUTES FOR MEALS ONE TO TWO TIMES A DAY, DAILY DOSE: 0.8 MG
     Route: 048

REACTIONS (3)
  - CROHN'S DISEASE [None]
  - METASTASES TO GASTROINTESTINAL TRACT [None]
  - METASTASES TO PROSTATE [None]
